FAERS Safety Report 18938469 (Version 1)
Quarter: 2021Q1

REPORT INFORMATION
  Report Type: Spontaneous
  Country: US (occurrence: US)
  Receive Date: 20210224
  Receipt Date: 20210224
  Transmission Date: 20210420
  Serious: Yes (Life-Threatening, Hospitalization)
  Sender: FDA-Public Use
  Company Number: None

PATIENT
  Age: 12 Year
  Sex: Male
  Weight: 41.4 kg

DRUGS (4)
  1. DOTAREM [Suspect]
     Active Substance: GADOTERATE MEGLUMINE
  2. CLAIRTON [Concomitant]
  3. OPTIRAY 320 [Suspect]
     Active Substance: IOVERSOL
     Indication: MAGNETIC RESONANCE IMAGING
     Dosage: ?          QUANTITY:5 INJECTION(S);OTHER FREQUENCY:ONCE;OTHER ROUTE:INJECTION?
     Dates: start: 20210224, end: 20210224
  4. OMEPRAZOLE. [Concomitant]
     Active Substance: OMEPRAZOLE

REACTIONS (1)
  - Anaphylactic reaction [None]

NARRATIVE: CASE EVENT DATE: 20210224
